FAERS Safety Report 5460231-9 (Version None)
Quarter: 2007Q3

REPORT INFORMATION
  Report Type: 
  Country: None (occurrence: None)
  Receive Date: 20070919
  Receipt Date: 20070605
  Transmission Date: 20080115
  Serious: No
  Sender: FDA-Public Use
  Company Number: US-ASTRAZENECA-2007UW13639

PATIENT
  Sex: Female

DRUGS (8)
  1. SEROQUEL [Suspect]
     Indication: MOOD SWINGS
     Dosage: SEROQUEL STARTER PACK
     Route: 048
     Dates: start: 20070602
  2. SEROQUEL [Suspect]
     Indication: BORDERLINE PERSONALITY DISORDER
     Dosage: SEROQUEL STARTER PACK
     Route: 048
     Dates: start: 20070602
  3. SEROQUEL [Suspect]
     Indication: INSOMNIA
     Dosage: SEROQUEL STARTER PACK
     Route: 048
     Dates: start: 20070602
  4. TEMAZEPAM [Concomitant]
  5. EFFEXOR [Concomitant]
  6. ATENOLOL [Concomitant]
  7. PERCOCET [Concomitant]
  8. SYNTHROID [Concomitant]

REACTIONS (4)
  - FEELING DRUNK [None]
  - FOOD CRAVING [None]
  - HYPERVIGILANCE [None]
  - SOMNOLENCE [None]
